FAERS Safety Report 4725872-2 (Version None)
Quarter: 2005Q3

REPORT INFORMATION
  Report Type: 
  Country: None (occurrence: None)
  Receive Date: 20050725
  Receipt Date: 20050725
  Transmission Date: 20060218
  Serious: Yes (Other)
  Sender: FDA-Public Use
  Company Number: None

PATIENT
  Age: 49 Year
  Sex: Female
  Weight: 113.3993 kg

DRUGS (5)
  1. ZICAM LIQUID NASAL GEL MATRIXX INITIATIVES INC [Suspect]
     Indication: NASAL CONGESTION
     Dosage: 1 SPRAY EACH USED ONLY ONCE NASAL
     Route: 045
     Dates: start: 20050425, end: 20050428
  2. ZICAM LIQUID NASAL GEL MATRIXX INITIATIVES INC [Suspect]
     Indication: UPPER RESPIRATORY TRACT INFECTION
     Dosage: 1 SPRAY EACH USED ONLY ONCE NASAL
     Route: 045
     Dates: start: 20050425, end: 20050428
  3. NEOSYNEPHRINE SHORT [Concomitant]
  4. ALEVE [Concomitant]
  5. LEVALL COUGH SYRUP [Concomitant]

REACTIONS (5)
  - DYSGEUSIA [None]
  - HYPOGEUSIA [None]
  - HYPOSMIA [None]
  - NASAL DISCOMFORT [None]
  - NASAL MUCOSAL DISORDER [None]
